FAERS Safety Report 5822696-X (Version None)
Quarter: 2008Q3

REPORT INFORMATION
  Report Type: 
  Country: None (occurrence: None)
  Receive Date: 20080714
  Receipt Date: 20080213
  Transmission Date: 20090109
  Serious: Yes (Other)
  Sender: FDA-Public Use
  Company Number: 547008

PATIENT
  Age: 51 Year
  Sex: Female
  Weight: 52.6 kg

DRUGS (1)
  1. BONIVA [Suspect]
     Indication: DRUG USE FOR UNKNOWN INDICATION
     Dates: start: 20080105, end: 20080105

REACTIONS (7)
  - ABDOMINAL PAIN [None]
  - ARTHRALGIA [None]
  - BONE PAIN [None]
  - DIARRHOEA [None]
  - INFLUENZA LIKE ILLNESS [None]
  - NAUSEA [None]
  - PAIN [None]
